FAERS Safety Report 16728768 (Version 1)
Quarter: 2019Q3

REPORT INFORMATION
  Report Type: Report from Study
  Country: ES (occurrence: ES)
  Receive Date: 20190822
  Receipt Date: 20190822
  Transmission Date: 20191005
  Serious: Yes (Hospitalization)
  Sender: FDA-Public Use
  Company Number: ES-TEVA-2019-ES-1094709

PATIENT
  Age: 85 Year
  Sex: Female

DRUGS (6)
  1. ALDOCUMAR 3 MG COMPRIMIDOS, 40 COMPRIMIDOS [Concomitant]
     Route: 048
  2. LOSARTAN/HIDROCLOROTIAZIDA 50 MG/12,5 MG 28 COMPRIMIDOS [Interacting]
     Active Substance: HYDROCHLOROTHIAZIDE\LOSARTAN POTASSIUM
     Indication: HYPERTENSION
     Dosage: 1-0-0, 1 DOSAGE FORM
     Route: 048
     Dates: start: 201808, end: 20190326
  3. ACFOL 5 MG COMPRIMIDOS , 28 COMPRIMIDOS [Concomitant]
     Route: 048
  4. CARBAMAZEPINA 200 MG 100 COMPRIMIDOS [Interacting]
     Active Substance: CARBAMAZEPINE
     Indication: FOCAL DYSCOGNITIVE SEIZURES
     Dosage: 1-1-2, 800 MG
     Route: 048
     Dates: start: 2000
  5. AMLODIPINO 5 MG 30 COMPRIMIDOS [Suspect]
     Active Substance: AMLODIPINE BESYLATE
     Indication: HYPERTENSION
     Dosage: 0-1-0
     Route: 048
     Dates: start: 201812, end: 20190327
  6. CLEXANE 6.000 UI (60 MG)/ 0,6 ML SOLUCION INYECTABLE EN JERINGA PRECAR [Concomitant]
     Route: 058

REACTIONS (4)
  - Syncope [Recovered/Resolved]
  - Hypotension [Recovered/Resolved]
  - Hyponatraemia [Recovered/Resolved]
  - Drug interaction [Unknown]

NARRATIVE: CASE EVENT DATE: 2019
